FAERS Safety Report 9281850 (Version 1)
Quarter: 2013Q2

REPORT INFORMATION
  Report Type: Report from Study
  Country: US (occurrence: US)
  Receive Date: 20130510
  Receipt Date: 20130510
  Transmission Date: 20140414
  Serious: Yes (Other)
  Sender: FDA-Public Use
  Company Number: US-ROCHE-1221852

PATIENT
  Sex: 0

DRUGS (4)
  1. TRASTUZUMAB [Suspect]
     Indication: BREAST CANCER
     Dosage: ON DAY 1 OF THE FIRST CYCLE
     Route: 065
  2. TRASTUZUMAB [Suspect]
     Indication: HER-2 POSITIVE BREAST CANCER
     Dosage: ON DAY 1 OF SUBSEQUENT CYCLES
     Route: 065
  3. ERIBULIN [Suspect]
     Indication: BREAST CANCER
     Dosage: ON DAYS 1 AND 8 OF A 21 DAY CYCLE
     Route: 042
  4. ERIBULIN [Suspect]
     Indication: HER-2 POSITIVE BREAST CANCER

REACTIONS (8)
  - Neutropenia [Unknown]
  - Neutropenia [Unknown]
  - Febrile neutropenia [Unknown]
  - Aspartate aminotransferase increased [Unknown]
  - Alanine aminotransferase increased [Unknown]
  - Fatigue [Unknown]
  - Bacteraemia [Unknown]
  - Gastroenteritis [Unknown]
